FAERS Safety Report 5062533-7 (Version None)
Quarter: 2006Q3

REPORT INFORMATION
  Report Type: 
  Country: None (occurrence: None)
  Receive Date: 20060703
  Receipt Date: 20051122
  Transmission Date: 20061208
  Serious: No
  Sender: FDA-Public Use
  Company Number: 2005S1011517

PATIENT
  Age: 15 Year
  Sex: Male
  Weight: 128.368 kg

DRUGS (2)
  1. CLOZAPINE [Suspect]
     Indication: BIPOLAR DISORDER
     Dosage: 200 MG;HS;ORAL
     Route: 048
     Dates: start: 20050510
  2. DEXAMFETAMINE SULFATE/AMFETAMINE SULFATE/DEXAMFETAMINE SACCHARATE/AMFE [Concomitant]

REACTIONS (1)
  - GRANULOCYTOPENIA [None]
